FAERS Safety Report 14958246 (Version 2)
Quarter: 2018Q2

REPORT INFORMATION
  Report Type: Spontaneous
  Country: US (occurrence: US)
  Receive Date: 20180531
  Receipt Date: 20180609
  Transmission Date: 20180711
  Serious: No
  Sender: FDA-Public Use
  Company Number: US-JNJFOC-20180517000

PATIENT
  Age: 60 Year
  Sex: Female

DRUGS (3)
  1. ZYRTEC [Suspect]
     Active Substance: CETIRIZINE HYDROCHLORIDE
     Indication: BURNING SENSATION
     Route: 065
  2. JOHNSONS AND JOHNSONS BABY OIL GEL LAVENDAR [Concomitant]
     Indication: PRODUCT USED FOR UNKNOWN INDICATION
     Route: 065
  3. ZYRTEC [Suspect]
     Active Substance: CETIRIZINE HYDROCHLORIDE
     Indication: URTICARIA
     Route: 065

REACTIONS (2)
  - Off label use [Unknown]
  - Product use in unapproved indication [Unknown]
